FAERS Safety Report 25966219 (Version 3)
Quarter: 2025Q4

REPORT INFORMATION
  Report Type: Spontaneous
  Country: JP (occurrence: JP)
  Receive Date: 20251028
  Receipt Date: 20251208
  Transmission Date: 20260118
  Serious: Yes (Other)
  Sender: Vantive US Healthcare
  Company Number: JP-VANTIVE-2025VAN004863

PATIENT
  Age: 4 Decade
  Sex: Female

DRUGS (3)
  1. EXTRANEAL [Suspect]
     Active Substance: CALCIUM CHLORIDE\ICODEXTRIN\MAGNESIUM CHLORIDE\SODIUM CHLORIDE\SODIUM LACTATE
     Dosage: UNK
     Route: 033
  2. CLARITHROMYCIN [Concomitant]
     Active Substance: CLARITHROMYCIN
     Indication: Peritonitis bacterial
     Route: 048
  3. MOXIFLOXACIN [Concomitant]
     Active Substance: MOXIFLOXACIN
     Indication: Peritonitis bacterial
     Route: 048

REACTIONS (8)
  - Acute generalised exanthematous pustulosis [Unknown]
  - Rash pruritic [Unknown]
  - Rash [Unknown]
  - Pustule [Unknown]
  - Inflammation [Unknown]
  - Eosinophilia [Unknown]
  - Tissue infiltration [Unknown]
  - Erythema [Unknown]
